FAERS Safety Report 20815660 (Version 1)
Quarter: 2022Q2

REPORT INFORMATION
  Report Type: Spontaneous
  Country: US (occurrence: US)
  Receive Date: 20220511
  Receipt Date: 20220511
  Transmission Date: 20220720
  Serious: No
  Sender: FDA-Public Use
  Company Number: US-PFIZER INC-202101549400

PATIENT
  Age: 82 Year
  Sex: Male
  Weight: 106.59 kg

DRUGS (1)
  1. DOXYCYCLINE HYCLATE [Suspect]
     Active Substance: DOXYCYCLINE HYCLATE
     Indication: Autoimmune disorder
     Dosage: UNK

REACTIONS (3)
  - Off label use [Unknown]
  - Rash [Unknown]
  - Dry skin [Unknown]
